FAERS Safety Report 10195976 (Version 1)
Quarter: 2014Q2

REPORT INFORMATION
  Report Type: Spontaneous
  Country: IT (occurrence: None)
  Receive Date: 20140522
  Receipt Date: 20140522
  Transmission Date: 20141212
  Serious: Yes (Life-Threatening)
  Sender: FDA-Public Use
  Company Number: 2339497

PATIENT
  Age: 52 Year
  Sex: Female

DRUGS (4)
  1. PACLITAXEL [Suspect]
     Indication: BREAST CANCER
     Dosage: CYCLICAL (NOT OTHERWISE SPECIFIED)
     Route: 042
     Dates: start: 20140408, end: 20140408
  2. TAVOR [Concomitant]
  3. LEPONEX [Concomitant]
  4. EUTIROX [Concomitant]

REACTIONS (4)
  - Respiratory failure [None]
  - Rash [None]
  - Cough [None]
  - Pruritus [None]
